FAERS Safety Report 4617421-4 (Version None)
Quarter: 2005Q1

REPORT INFORMATION
  Report Type: 
  Country: None (occurrence: None)
  Receive Date: 20050324
  Receipt Date: 20050314
  Transmission Date: 20050727
  Serious: Yes (Hospitalization)
  Sender: FDA-Public Use
  Company Number: JP-JNJFOC-20050106955

PATIENT
  Sex: Male
  Weight: 43.9 kg

DRUGS (7)
  1. REMICADE [Suspect]
     Route: 042
  2. REMICADE [Suspect]
     Route: 042
  3. REMICADE [Suspect]
     Indication: CROHN'S DISEASE
     Route: 042
  4. IMURAN [Suspect]
     Indication: DRUG USE FOR UNKNOWN INDICATION
     Route: 049
  5. PREDNISOLONE [Concomitant]
     Dates: start: 20021001
  6. PENTASA [Concomitant]
     Route: 049
     Dates: start: 20000601
  7. TAKEPRON [Concomitant]
     Indication: GASTRIC ULCER

REACTIONS (8)
  - ABDOMINAL PAIN [None]
  - AGRANULOCYTOSIS [None]
  - ALOPECIA [None]
  - DIARRHOEA [None]
  - GRANULOCYTOPENIA [None]
  - PHARYNGITIS [None]
  - PYREXIA [None]
  - STOMATITIS [None]
